FAERS Safety Report 5754035-7 (Version None)
Quarter: 2008Q2

REPORT INFORMATION
  Report Type: 
  Country: None (occurrence: None)
  Receive Date: 20080530
  Receipt Date: 20080519
  Transmission Date: 20081010
  Serious: Yes (Hospitalization)
  Sender: FDA-Public Use
  Company Number: RO-ROCHE-565370

PATIENT
  Age: 48 Year
  Sex: Female
  Weight: 48 kg

DRUGS (2)
  1. PEGASYS [Suspect]
     Dosage: FORMULATION REPORTED AS: VIAL
     Route: 058
     Dates: start: 20080201, end: 20080515
  2. COPEGUS [Concomitant]
     Route: 048
     Dates: start: 20080201, end: 20080515

REACTIONS (1)
  - APPENDICITIS [None]
